FAERS Safety Report 15129990 (Version 6)
Quarter: 2019Q2

REPORT INFORMATION
  Report Type: Spontaneous
  Country: CA (occurrence: CA)
  Receive Date: 20180711
  Receipt Date: 20190429
  Transmission Date: 20190711
  Serious: Yes (Hospitalization)
  Sender: FDA-Public Use
  Company Number: CA-PFIZER INC-2018275625

PATIENT
  Age: 59 Year
  Sex: Female

DRUGS (5)
  1. XELJANZ [Suspect]
     Active Substance: TOFACITINIB CITRATE
     Dosage: 5 MG, 2X/DAY
     Route: 048
     Dates: start: 20190104, end: 20190315
  2. METHOTREXATE SODIUM. [Suspect]
     Active Substance: METHOTREXATE SODIUM
     Indication: RHEUMATOID ARTHRITIS
     Dosage: 20 MG, Q
     Dates: start: 20170828, end: 201812
  3. XELJANZ [Suspect]
     Active Substance: TOFACITINIB CITRATE
     Indication: RHEUMATOID ARTHRITIS
     Dosage: 5 MG, 2X/DAY
     Route: 048
     Dates: start: 20171229, end: 201812
  4. HYDROMORPHONE [Concomitant]
     Active Substance: HYDROMORPHONE
     Indication: ARTHRALGIA
     Dosage: UNK
     Dates: start: 201901
  5. METHOTREXATE SODIUM. [Suspect]
     Active Substance: METHOTREXATE SODIUM
     Dosage: 20 MG, Q
     Dates: start: 20190107

REACTIONS (7)
  - Gastroenteritis viral [Unknown]
  - Nasopharyngitis [Unknown]
  - Dehydration [Unknown]
  - Hepatic enzyme increased [Recovered/Resolved]
  - Condition aggravated [Unknown]
  - Upper respiratory tract infection [Unknown]
  - Blister [Unknown]

NARRATIVE: CASE EVENT DATE: 201804
